FAERS Safety Report 5098586-X (Version None)
Quarter: 2006Q3

REPORT INFORMATION
  Report Type: 
  Country: None (occurrence: None)
  Receive Date: 20060906
  Receipt Date: 20060309
  Transmission Date: 20061208
  Serious: No
  Sender: FDA-Public Use
  Company Number: US-GLAXOSMITHKLINE-A0596940A

PATIENT
  Age: 76 Year
  Sex: Female

DRUGS (5)
  1. REQUIP [Suspect]
     Indication: RESTLESS LEGS SYNDROME
     Dosage: 1MG PER DAY
     Route: 048
     Dates: start: 20060101
  2. ACTONEL [Concomitant]
  3. ATENOLOL [Concomitant]
  4. LESCOL [Concomitant]
  5. DETROL [Concomitant]

REACTIONS (1)
  - ABNORMAL DREAMS [None]
